FAERS Safety Report 7377391-5 (Version None)
Quarter: 2011Q1

REPORT INFORMATION
  Report Type: 
  Country: None (occurrence: None)
  Receive Date: 20110328
  Receipt Date: 20110322
  Transmission Date: 20110831
  Serious: No
  Sender: FDA-Public Use
  Company Number: US-PFIZER INC-2011045139

PATIENT
  Sex: Female
  Weight: 73.469 kg

DRUGS (9)
  1. ZETIA [Concomitant]
     Indication: CARDIAC DISORDER
     Dosage: 10 MG, 1X/DAY
     Route: 048
  2. GABAPENTIN [Concomitant]
     Indication: PERIPHERAL VASCULAR DISORDER
     Dosage: 300 MG, 2X/DAY
  3. SYNTHROID [Concomitant]
     Indication: THYROID DISORDER
     Dosage: 75 UG, 1X/DAY
     Route: 048
  4. ADVIL COLD AND SINUS [Suspect]
     Indication: NASAL CONGESTION
  5. XANAX [Concomitant]
     Indication: ANXIETY
     Dosage: 0.25 MG, 2X/DAY
     Route: 048
  6. ADVIL COLD AND SINUS [Suspect]
     Indication: SINUSITIS
     Dosage: 800 MG, DAILY
     Route: 048
     Dates: start: 20110228, end: 20110228
  7. TOPROL-XL [Concomitant]
     Indication: HYPERTENSION
     Dosage: 25 MG, 1X/DAY
     Route: 048
  8. ACETYLSALICYLIC ACID [Concomitant]
     Indication: STENT PLACEMENT
     Dosage: 81 MG, 1X/DAY
  9. ATACAND HCT [Concomitant]
     Indication: HYPERTENSION
     Dosage: 16/4.5
     Route: 048

REACTIONS (1)
  - INSOMNIA [None]
